FAERS Safety Report 5934539-4 (Version None)
Quarter: 2008Q4

REPORT INFORMATION
  Report Type: 
  Country: None (occurrence: None)
  Receive Date: 20081027
  Receipt Date: 20081017
  Transmission Date: 20090506
  Serious: Yes (Other)
  Sender: FDA-Public Use
  Company Number: SPV1-2008-02249

PATIENT
  Age: 32 Year
  Sex: Male
  Weight: 53.5 kg

DRUGS (3)
  1. ELAPRASE [Suspect]
     Indication: MUCOPOLYSACCHARIDOSIS II
     Dosage: 27.3 MG, 1X/WEEK, IV DRIP
     Route: 041
     Dates: start: 20070911
  2. VASOTEC [Concomitant]
  3. XANAX [Concomitant]

REACTIONS (2)
  - HALLUCINATION, AUDITORY [None]
  - PSYCHOTIC DISORDER [None]
